FAERS Safety Report 21534941 (Version 1)
Quarter: 2022Q4

REPORT INFORMATION
  Report Type: Spontaneous
  Country: US (occurrence: None)
  Receive Date: 20221031
  Receipt Date: 20221031
  Transmission Date: 20230113
  Serious: No
  Sender: FDA-Public Use
  Company Number: None

PATIENT
  Sex: Male

DRUGS (1)
  1. EQUATE ADULT COUGH AND CHEST CONGESTION DM [Suspect]
     Active Substance: DEXTROMETHORPHAN HYDROBROMIDE\GUAIFENESIN
     Indication: Antitussive therapy
     Dosage: OTHER QUANTITY : 1 20ML Q 4HOURS PRN;?FREQUENCY : EVERY 4 HOURS;?
     Route: 048
     Dates: start: 20220615, end: 20220815

REACTIONS (6)
  - Headache [None]
  - Vision blurred [None]
  - Hypertension [None]
  - Decreased appetite [None]
  - Malaise [None]
  - Urine output decreased [None]

NARRATIVE: CASE EVENT DATE: 20220615
